FAERS Safety Report 9452666 (Version 2)
Quarter: 2013Q4

REPORT INFORMATION
  Report Type: Spontaneous
  Country: US (occurrence: US)
  Receive Date: 20130812
  Receipt Date: 20131113
  Transmission Date: 20140711
  Serious: Yes (Other)
  Sender: FDA-Public Use
  Company Number: US-COVIDIEN/TYCO HEALTHCARE/MALLINCKRODT-T201303966

PATIENT
  Age: 5 Year
  Sex: Female

DRUGS (4)
  1. GABLOFEN [Suspect]
     Indication: MUSCLE SPASTICITY
     Dosage: 165 MCG/DAY
     Route: 037
     Dates: start: 20121029
  2. GABLOFEN [Suspect]
     Dosage: 215 MCG/DAY
     Route: 037
     Dates: start: 20130128
  3. GABLOFEN [Suspect]
     Dosage: UNK
     Route: 037
     Dates: start: 20130415
  4. GABLOFEN [Suspect]
     Dosage: 284 MCG/DAY
     Route: 037
     Dates: start: 20130620

REACTIONS (7)
  - Device failure [Unknown]
  - Pseudomeningocele [Unknown]
  - Cerebrospinal fluid leakage [Unknown]
  - Incision site oedema [Unknown]
  - Joint range of motion decreased [Unknown]
  - Muscle spasticity [Recovering/Resolving]
  - Drug ineffective [Unknown]
